FAERS Safety Report 14256963 (Version 9)
Quarter: 2019Q1

REPORT INFORMATION
  Report Type: Report from Study
  Country: CA (occurrence: CA)
  Receive Date: 20171206
  Receipt Date: 20190318
  Transmission Date: 20190417
  Serious: Yes (Hospitalization)
  Sender: FDA-Public Use
  Company Number: CA-HLSUS-2016-CA-000123

PATIENT
  Age: 71 Year
  Sex: Male
  Weight: 53.07 kg

DRUGS (1)
  1. CLOZARIL [Suspect]
     Active Substance: CLOZAPINE
     Dosage: 150MG AT BEDTIME
     Route: 048
     Dates: start: 19950517, end: 20190219

REACTIONS (27)
  - Hypotension [Recovered/Resolved]
  - Hypotension [Not Recovered/Not Resolved]
  - Somnolence [Not Recovered/Not Resolved]
  - Enuresis [Recovered/Resolved]
  - Diarrhoea [Recovered/Resolved]
  - Tachycardia [Recovered/Resolved]
  - Subileus [Unknown]
  - Pneumonia aspiration [Unknown]
  - Asthenia [Recovered/Resolved]
  - Abdominal infection [Unknown]
  - Salivary hypersecretion [Not Recovered/Not Resolved]
  - Pneumonia [Recovered/Resolved]
  - Gastrointestinal obstruction [Unknown]
  - Headache [Recovered/Resolved]
  - Confusional state [Recovered/Resolved]
  - Confusional state [Recovered/Resolved]
  - Asthenia [Unknown]
  - Vision blurred [Recovered/Resolved]
  - Hyperhidrosis [Recovered/Resolved]
  - Constipation [Not Recovered/Not Resolved]
  - Salivary hypersecretion [Not Recovered/Not Resolved]
  - Weight decreased [Unknown]
  - Hypertonia [Unknown]
  - Cough [Unknown]
  - Hypertonia [Recovered/Resolved]
  - Dry mouth [Not Recovered/Not Resolved]
  - Lethargy [Not Recovered/Not Resolved]

NARRATIVE: CASE EVENT DATE: 20180709
